FAERS Safety Report 5697456-3 (Version None)
Quarter: 2008Q2

REPORT INFORMATION
  Report Type: 
  Country: None (occurrence: None)
  Receive Date: 20080407
  Receipt Date: 20080328
  Transmission Date: 20081010
  Serious: Yes (Other)
  Sender: FDA-Public Use
  Company Number: PHHY2008GB03419

PATIENT
  Sex: Female

DRUGS (2)
  1. TEGRETOL [Suspect]
     Indication: CONVULSION
     Dosage: 800 MG, UNK
     Route: 048
     Dates: start: 20051101, end: 20080218
  2. VALPROATE SODIUM [Concomitant]

REACTIONS (4)
  - BALANCE DISORDER [None]
  - BLOOD CHOLESTEROL INCREASED [None]
  - PROTEIN TOTAL ABNORMAL [None]
  - VISUAL ACUITY REDUCED [None]
